FAERS Safety Report 15623860 (Version 1)
Quarter: 2018Q4

REPORT INFORMATION
  Report Type: Report from Study
  Country: CA (occurrence: CA)
  Receive Date: 20181115
  Receipt Date: 20181115
  Transmission Date: 20190205
  Serious: Yes (Death)
  Sender: FDA-Public Use
  Company Number: CA-BIOGEN-2018BI00659160

PATIENT
  Age: 58 Year
  Sex: Male

DRUGS (1)
  1. FAMPYRA [Suspect]
     Active Substance: DALFAMPRIDINE
     Indication: GAIT DISTURBANCE
     Route: 048
     Dates: start: 20141105, end: 20181112

REACTIONS (1)
  - Death [Fatal]

NARRATIVE: CASE EVENT DATE: 20181112
